FAERS Safety Report 8508361-9 (Version None)
Quarter: 2012Q3

REPORT INFORMATION
  Report Type: 
  Country: None (occurrence: None)
  Receive Date: 20120713
  Receipt Date: 20120709
  Transmission Date: 20120928
  Serious: Yes (Hospitalization, Other)
  Sender: FDA-Public Use
  Company Number: PHEH2011US06052

PATIENT
  Sex: Female

DRUGS (2)
  1. GILENYA [Suspect]
     Dosage: 0.5 MG, QD
     Route: 048
     Dates: end: 20120101
  2. GILENYA [Suspect]
     Indication: MULTIPLE SCLEROSIS
     Dosage: 0.5 MG, QD
     Route: 048
     Dates: start: 20101220, end: 20111001

REACTIONS (16)
  - DEMYELINATION [None]
  - MUSCLE SPASTICITY [None]
  - ATAXIA [None]
  - CENTRAL NERVOUS SYSTEM LESION [None]
  - MULTIPLE SCLEROSIS [None]
  - DRUG INEFFECTIVE [None]
  - MULTIPLE SCLEROSIS RELAPSE [None]
  - ASTHENIA [None]
  - DIZZINESS [None]
  - BLINDNESS [None]
  - PAIN [None]
  - HYPOAESTHESIA [None]
  - AMNESIA [None]
  - VISION BLURRED [None]
  - BALANCE DISORDER [None]
  - PARESIS [None]
